FAERS Safety Report 8429818-5 (Version None)
Quarter: 2012Q2

REPORT INFORMATION
  Report Type: 
  Country: None (occurrence: None)
  Receive Date: 20120612
  Receipt Date: 20120605
  Transmission Date: 20120825
  Serious: Yes (Other)
  Sender: FDA-Public Use
  Company Number: HR-GENZYME-CERZ-1002522

PATIENT
  Sex: Male

DRUGS (2)
  1. CEREZYME [Suspect]
     Indication: GAUCHER'S DISEASE
     Dosage: 60 U/KG, Q2W
     Route: 042
     Dates: start: 20100501, end: 20120501
  2. CEREZYME [Suspect]
     Dosage: 40 U/KG, Q2W
     Route: 042

REACTIONS (1)
  - TREMOR [None]
